FAERS Safety Report 13458515 (Version 2)
Quarter: 2017Q2

REPORT INFORMATION
  Report Type: Spontaneous
  Country: JP (occurrence: JP)
  Receive Date: 20170419
  Receipt Date: 20170426
  Transmission Date: 20170830
  Serious: Yes (Other)
  Sender: FDA-Public Use
  Company Number: JP-ASTRAZENECA-2017SE31760

PATIENT
  Age: 30246 Day
  Sex: Male
  Weight: 52 kg

DRUGS (14)
  1. IRESSA [Suspect]
     Active Substance: GEFITINIB
     Indication: NON-SMALL CELL LUNG CANCER
     Route: 048
     Dates: start: 20160806, end: 20170302
  2. TAKEPRON [Concomitant]
     Active Substance: LANSOPRAZOLE
     Indication: GASTRIC ULCER
     Route: 048
  3. MUCODYNE [Concomitant]
     Active Substance: CARBOCYSTEINE
     Indication: BRONCHITIS
     Route: 048
  4. PRIMPERAN [Concomitant]
     Active Substance: METOCLOPRAMIDE HYDROCHLORIDE
     Indication: NAUSEA
     Route: 048
  5. TAGRISSO [Suspect]
     Active Substance: OSIMERTINIB
     Indication: NON-SMALL CELL LUNG CANCER
     Route: 048
     Dates: start: 20170302, end: 20170313
  6. TAGRISSO [Suspect]
     Active Substance: OSIMERTINIB
     Indication: NON-SMALL CELL LUNG CANCER
     Route: 048
     Dates: end: 20170321
  7. EPADEL S [Concomitant]
     Active Substance: ICOSAPENT ETHYL
     Indication: LIPIDS ABNORMAL
     Route: 048
  8. PLAVIX [Concomitant]
     Active Substance: CLOPIDOGREL BISULFATE
     Indication: MYOCARDIAL INFARCTION
     Route: 048
  9. ARTIST [Concomitant]
     Active Substance: CARVEDILOL
     Indication: CARDIAC FAILURE CHRONIC
     Route: 048
  10. LIVALO [Concomitant]
     Active Substance: PITAVASTATIN CALCIUM
     Indication: LIPIDS ABNORMAL
     Route: 048
  11. IRESSA [Suspect]
     Active Substance: GEFITINIB
     Indication: ADENOSQUAMOUS CELL CARCINOMA
     Route: 048
     Dates: start: 20160806, end: 20170302
  12. URSO [Concomitant]
     Active Substance: URSODIOL
     Indication: LIVER DISORDER
     Route: 048
  13. LOXONIN [Concomitant]
     Active Substance: LOXOPROFEN SODIUM
     Indication: CANCER PAIN
     Route: 048
  14. TRAMCET [Concomitant]
     Active Substance: ACETAMINOPHEN\TRAMADOL
     Indication: FRACTURE PAIN
     Dosage: DOSE UNKNOWN
     Route: 048

REACTIONS (7)
  - Ventricular extrasystoles [Unknown]
  - Interstitial lung disease [Recovering/Resolving]
  - Femoral neck fracture [Unknown]
  - Metastases to lung [Unknown]
  - Electrocardiogram QT prolonged [Unknown]
  - Malignant neoplasm progression [Unknown]
  - Road traffic accident [Unknown]

NARRATIVE: CASE EVENT DATE: 20161209
